FAERS Safety Report 16067777 (Version 1)
Quarter: 2019Q1

REPORT INFORMATION
  Report Type: Spontaneous
  Country: US (occurrence: US)
  Receive Date: 20190313
  Receipt Date: 20190313
  Transmission Date: 20190418
  Serious: No
  Sender: FDA-Public Use
  Company Number: US-ELI_LILLY_AND_COMPANY-US201902014239

PATIENT
  Sex: Female
  Weight: 63.4 kg

DRUGS (3)
  1. REMODULIN [Suspect]
     Active Substance: TREPROSTINIL
     Indication: PULMONARY ARTERIAL HYPERTENSION
     Dosage: 2 NG/KG/MIN, UNKNOWN
     Route: 058
     Dates: start: 20190206
  2. TADALAFIL. [Suspect]
     Active Substance: TADALAFIL
     Indication: PULMONARY ARTERIAL HYPERTENSION
     Dosage: UNK, UNKNOWN
     Route: 065
  3. LETAIRIS [Suspect]
     Active Substance: AMBRISENTAN
     Indication: PRODUCT USED FOR UNKNOWN INDICATION
     Dosage: UNK, UNKNOWN
     Route: 065

REACTIONS (8)
  - Peripheral swelling [Unknown]
  - Injection site pain [Unknown]
  - Pain [Unknown]
  - Dyspnoea [Unknown]
  - Abdominal distension [Unknown]
  - Vomiting [Unknown]
  - Renal disorder [Unknown]
  - Nausea [Unknown]
